FAERS Safety Report 23327418 (Version 2)
Quarter: 2024Q1

REPORT INFORMATION
  Report Type: Spontaneous
  Country: US (occurrence: US)
  Receive Date: 20231221
  Receipt Date: 20240226
  Transmission Date: 20240410
  Serious: Yes (Other)
  Sender: FDA-Public Use
  Company Number: US-BAYER-2023A181621

PATIENT
  Age: 21 Year
  Sex: Male

DRUGS (9)
  1. STIVARGA [Suspect]
     Active Substance: REGORAFENIB
     Dosage: 80 MG, QD
     Dates: start: 20230620, end: 20230626
  2. STIVARGA [Suspect]
     Active Substance: REGORAFENIB
     Dosage: 120 MG, QD
     Dates: start: 20230627, end: 20230703
  3. STIVARGA [Suspect]
     Active Substance: REGORAFENIB
     Dosage: 160 MG, QD
     Dates: start: 20230704, end: 20230710
  4. STIVARGA [Suspect]
     Active Substance: REGORAFENIB
     Dosage: 160 MG, QD
     Dates: start: 20230801, end: 20230821
  5. STIVARGA [Suspect]
     Active Substance: REGORAFENIB
     Dosage: 120 MG, QD
     Dates: start: 20230905, end: 20230925
  6. STIVARGA [Suspect]
     Active Substance: REGORAFENIB
     Dosage: 120 MG, QD
     Dates: start: 20231031, end: 20231120
  7. STIVARGA [Suspect]
     Active Substance: REGORAFENIB
     Dosage: 120 MG, QD
     Dates: start: 20231128, end: 20231211
  8. STIVARGA [Suspect]
     Active Substance: REGORAFENIB
     Dosage: 120 MG, QD
     Dates: start: 20231213, end: 20231218
  9. STIVARGA [Suspect]
     Active Substance: REGORAFENIB
     Dosage: 120 MG, QD
     Dates: start: 20231226, end: 20240115

REACTIONS (18)
  - Pericardial effusion [Not Recovered/Not Resolved]
  - Gastrointestinal disorder [Not Recovered/Not Resolved]
  - Ovarian cancer [None]
  - Chest pain [Not Recovered/Not Resolved]
  - Abdominal pain [Not Recovered/Not Resolved]
  - Dyspnoea [Not Recovered/Not Resolved]
  - Heart rate abnormal [None]
  - Diarrhoea [None]
  - Decreased appetite [Not Recovered/Not Resolved]
  - Anaemia [None]
  - Product dose omission issue [None]
  - Off label use [None]
  - Thrombocytosis [Recovering/Resolving]
  - Blood lactate dehydrogenase increased [None]
  - Tachycardia [None]
  - Nausea [None]
  - Gastrooesophageal reflux disease [None]
  - Dehydration [None]

NARRATIVE: CASE EVENT DATE: 20231204
